FAERS Safety Report 11704631 (Version 1)
Quarter: 2015Q4

REPORT INFORMATION
  Report Type: Spontaneous
  Country: US (occurrence: None)
  Receive Date: 20151105
  Receipt Date: 20151105
  Transmission Date: 20160304
  Serious: No
  Sender: FDA-Public Use
  Company Number: None

PATIENT

DRUGS (1)
  1. REFRESH EYE DROPS (MINERAL OIL\PETROLATUM) [Suspect]
     Active Substance: MINERAL OIL\PETROLATUM

REACTIONS (2)
  - Drug administration error [None]
  - Vitreous floaters [None]
